FAERS Safety Report 8428533 (Version 4)
Quarter: 2012Q4

REPORT INFORMATION
  Report Type: 
  Country: JP (occurrence: JP)
  Receive Date: 20120227
  Receipt Date: 20121127
  Transmission Date: 20130627
  Serious: Yes (Other)
  Sender: FDA-Public Use
  Company Number: JP-CELGENEUS-087-21660-12022724

PATIENT
  Age: 47 Year
  Sex: Female
  Weight: 37 kg

DRUGS (10)
  1. ABRAXANE [Suspect]
     Indication: BREAST CANCER METASTATIC
     Dosage: 330 Milligram
     Route: 041
     Dates: start: 20101111
  2. ABRAXANE [Suspect]
     Dosage: 330 Milligram
     Route: 041
     Dates: start: 20110324
  3. ABRAXANE [Suspect]
     Dosage: 280 Milligram
     Route: 041
     Dates: start: 20110414, end: 20110414
  4. ABRAXANE [Suspect]
     Dosage: 400 Milligram
     Route: 041
  5. TAKEPRON [Concomitant]
     Indication: DRUG USE FOR UNKNOWN INDICATION
     Route: 048
     Dates: start: 20100807
  6. MAGLAX [Concomitant]
     Indication: DRUG USE FOR UNKNOWN INDICATION
     Route: 048
     Dates: start: 20100914
  7. GRANISETRON HYDROCHLORIDE [Concomitant]
     Indication: DRUG USE FOR UNKNOWN INDICATION
     Route: 065
     Dates: start: 20101111, end: 20101111
  8. ZOMETA [Concomitant]
     Indication: DRUG USE FOR UNKNOWN INDICATION
     Dosage: 4 Milligram
     Route: 065
     Dates: start: 20101202
  9. FERROMIA [Concomitant]
     Indication: DRUG USE FOR UNKNOWN INDICATION
     Route: 048
     Dates: start: 20101125
  10. PREDONINE [Concomitant]
     Indication: DRUG USE FOR UNKNOWN INDICATION
     Route: 048
     Dates: start: 20110303, end: 20110414

REACTIONS (1)
  - Cystoid macular oedema [Recovered/Resolved]
